FAERS Safety Report 4353585-8 (Version None)
Quarter: 2004Q2

REPORT INFORMATION
  Report Type: 
  Country: None (occurrence: None)
  Receive Date: 20040430
  Receipt Date: 20040414
  Transmission Date: 20050107
  Serious: Yes (Life-Threatening, Hospitalization)
  Sender: FDA-Public Use
  Company Number: 205422

PATIENT
  Age: 78 Year
  Sex: Male
  Weight: 76.5 kg

DRUGS (20)
  1. BEVACIZUMAB (BEVACIZUMAB) PWDR + SOLVENT, INFUSION SOLN, 100MG [Suspect]
     Indication: COLORECTAL CANCER METASTATIC
     Dosage: INTRAVENOUS
     Route: 042
     Dates: start: 20040212, end: 20040304
  2. LOPERAMIDE [Suspect]
     Indication: DIARRHOEA
     Dosage: PRN, ORAL
     Route: 048
     Dates: start: 20040312
  3. OXALIPLATIN [Concomitant]
  4. CAPECETABINE (CAPECITABINE) [Concomitant]
  5. ROCEPHIN [Concomitant]
  6. CIPROFLOXACIN [Concomitant]
  7. HYDROCHLOROTHIAZIDE [Concomitant]
  8. SEREVENT [Concomitant]
  9. CHLORPROMAZINE [Concomitant]
  10. ANZEMET [Concomitant]
  11. DECADRON [Concomitant]
  12. LORAZEPAM [Concomitant]
  13. COMPAZINE [Concomitant]
  14. LACTULOSE [Concomitant]
  15. PRAZOSIN (PRAZOSIN HYDROCHLORIDE) [Concomitant]
  16. FLOVENT (FLUTICASONE PROPRIONATE) [Concomitant]
  17. VICODIN (HYDROCODONE BITITRATE, ACETAMINOPHEN) [Concomitant]
  18. COLACE (DOCUSATE SODIUM) [Concomitant]
  19. ALBUTEROL INHALER (ALBUTEROL SULFATE, ALBUTEROL) [Concomitant]
  20. DILTIA XT (DILTIAZEM HYDROCHLORIDE) [Concomitant]

REACTIONS (19)
  - ABDOMINAL DISTENSION [None]
  - ABDOMINAL TENDERNESS [None]
  - BLOOD CREATINE INCREASED [None]
  - BLOOD MAGNESIUM INCREASED [None]
  - BLOOD POTASSIUM DECREASED [None]
  - BLOOD SODIUM DECREASED [None]
  - BLOOD UREA INCREASED [None]
  - DIARRHOEA [None]
  - DISEASE PROGRESSION [None]
  - HAEMATOCRIT DECREASED [None]
  - HAEMOGLOBIN DECREASED [None]
  - HICCUPS [None]
  - ILEUS [None]
  - INTESTINAL OBSTRUCTION [None]
  - LUNG NEOPLASM [None]
  - NAUSEA [None]
  - OVERDOSE [None]
  - PROTHROMBIN TIME PROLONGED [None]
  - VOMITING [None]
